FAERS Safety Report 6762891-9 (Version None)
Quarter: 2010Q2

REPORT INFORMATION
  Report Type: 
  Country: None (occurrence: None)
  Receive Date: 20100609
  Receipt Date: 20100528
  Transmission Date: 20101027
  Serious: Yes (Other)
  Sender: FDA-Public Use
  Company Number: US-PFIZER INC-2010067894

PATIENT
  Sex: Female

DRUGS (4)
  1. DILANTIN [Suspect]
     Indication: PARTIAL SEIZURES
     Dosage: 30 MG, 1X/DAY
     Route: 048
  2. LORAZEPAM [Concomitant]
     Indication: ANXIETY
     Dosage: 0.5 MG HALF OF THE PILLS DAILY
     Route: 048
  3. DILANTIN [Concomitant]
     Dosage: 100 MG, UNK
     Route: 048
  4. DILANTIN [Concomitant]
     Indication: PARTIAL SEIZURES
     Dosage: 50 MG, UNK
     Route: 048

REACTIONS (1)
  - HALLUCINATION [None]
